FAERS Safety Report 9993648 (Version 1)
Quarter: 2014Q1

REPORT INFORMATION
  Report Type: Spontaneous
  Country: US (occurrence: US)
  Receive Date: 20140310
  Receipt Date: 20140310
  Transmission Date: 20141002
  Serious: Yes (Hospitalization)
  Sender: FDA-Public Use
  Company Number: US-B.I. PHARMACEUTICALS,INC./RIDGEFIELD-2014-BI-09931BP

PATIENT
  Sex: Female
  Weight: 95 kg

DRUGS (6)
  1. SPIRIVA [Suspect]
     Indication: CHRONIC OBSTRUCTIVE PULMONARY DISEASE
     Dosage: 18 MCG
     Route: 055
     Dates: start: 2011
  2. SYNMBICORT [Concomitant]
     Indication: CHRONIC OBSTRUCTIVE PULMONARY DISEASE
     Dosage: FORMULATION: INHALATION AEROSOL
     Route: 055
  3. NEUROTIN [Concomitant]
     Indication: ARTHRITIS
     Route: 048
  4. VESICARE [Concomitant]
     Indication: BLADDER DISORDER
     Route: 048
  5. ALBUTEROL [Concomitant]
     Indication: INHALATION THERAPY
     Dosage: FORMULATION: INHALATION AEROSOL
     Route: 055
  6. ALLOPURINOL [Concomitant]
     Indication: GOUT
     Route: 048

REACTIONS (2)
  - Arthritis [Recovered/Resolved]
  - Chronic obstructive pulmonary disease [Not Recovered/Not Resolved]
